FAERS Safety Report 8654379 (Version 2)
Quarter: 2012Q4

REPORT INFORMATION
  Report Type: Spontaneous
  Country: US (occurrence: None)
  Receive Date: 20120615
  Receipt Date: 20120927
  Transmission Date: 20130627
  Serious: Yes (Other)
  Sender: FDA-Public Use
  Company Number: ACO_30587_2012

PATIENT
  Age: 52 Year
  Sex: Male
  Weight: 83.9 kg

DRUGS (5)
  1. AMPYRA [Suspect]
     Indication: GAIT DISTURBANCE
     Dosage: 10 MG, Q 12 HRS, ORAL
     Route: 048
     Dates: start: 20120504, end: 20120508
  2. LISINOPRIL / HCTZ (HYDROCHLOROTHIAZIDE, LISINOPRIL) [Concomitant]
  3. PANTOPRAZOLE [Concomitant]
  4. OXYBUTYNIN [Concomitant]
  5. PROPRANOLOL [Concomitant]

REACTIONS (1)
  - DRUG HYPERSENSITIVITY [None]
